FAERS Safety Report 9549292 (Version 2)
Quarter: 2013Q3

REPORT INFORMATION
  Report Type: Spontaneous
  Country: US (occurrence: US)
  Receive Date: 20130924
  Receipt Date: 20130924
  Transmission Date: 20140515
  Serious: No
  Sender: FDA-Public Use
  Company Number: US-009507513-1208USA003520

PATIENT
  Age: 32 Year
  Sex: Female

DRUGS (2)
  1. ISENTRESS [Suspect]
     Dosage: 800 MG, QD
     Route: 048
     Dates: start: 20090707
  2. COMBIVIR [Suspect]
     Dosage: 2 TAB/CAPS, UNK
     Route: 048
     Dates: start: 20090707

REACTIONS (1)
  - Exposure during pregnancy [Recovered/Resolved]
